FAERS Safety Report 6557657-9 (Version None)
Quarter: 2010Q1

REPORT INFORMATION
  Report Type: 
  Country: None (occurrence: None)
  Receive Date: 20100129
  Receipt Date: 20090506
  Transmission Date: 20100710
  Serious: No
  Sender: FDA-Public Use
  Company Number: A0776197A

PATIENT
  Age: 49 Year
  Sex: Female

DRUGS (4)
  1. COMBIVIR [Suspect]
     Indication: HIV INFECTION
     Dosage: 1MG TWICE PER DAY
     Route: 048
     Dates: start: 20010215, end: 20090301
  2. KALETRA [Concomitant]
  3. BLOOD PRESSURE MEDICATION [Concomitant]
  4. ASPIRIN [Concomitant]

REACTIONS (3)
  - DECREASED APPETITE [None]
  - LIPOATROPHY [None]
  - WEIGHT DECREASED [None]
